FAERS Safety Report 7989222-0 (Version None)
Quarter: 2011Q4

REPORT INFORMATION
  Report Type: 
  Country: None (occurrence: None)
  Receive Date: 20111219
  Receipt Date: 20111208
  Transmission Date: 20120403
  Serious: Yes (Life-Threatening, Hospitalization)
  Sender: FDA-Public Use
  Company Number: US-JNJFOC-20111003501

PATIENT
  Sex: Male

DRUGS (6)
  1. REMICADE [Suspect]
     Dosage: WEEK 0 AND 2.
     Route: 042
     Dates: start: 20100101
  2. IMURAN [Concomitant]
     Indication: CROHN'S DISEASE
     Route: 065
     Dates: start: 20110101
  3. REMICADE [Suspect]
     Indication: CROHN'S DISEASE
     Route: 042
     Dates: end: 20110101
  4. REMICADE [Suspect]
     Indication: COLITIS ULCERATIVE
     Route: 042
     Dates: end: 20110101
  5. REMICADE [Suspect]
     Dosage: WEEK 0 AND 2.
     Route: 042
     Dates: start: 20100101
  6. PREDNISONE [Concomitant]
     Indication: CROHN'S DISEASE
     Route: 065
     Dates: start: 20110101

REACTIONS (1)
  - DISSEMINATED TUBERCULOSIS [None]
